FAERS Safety Report 19106087 (Version 1)
Quarter: 2021Q2

REPORT INFORMATION
  Report Type: Spontaneous
  Country: CA (occurrence: CA)
  Receive Date: 20210407
  Receipt Date: 20210407
  Transmission Date: 20210717
  Serious: Yes (Hospitalization, Other)
  Sender: FDA-Public Use
  Company Number: CA-009507513-2104CAN001351

PATIENT
  Age: 56 Year
  Sex: Female
  Weight: 69 kg

DRUGS (9)
  1. AMLODIPINE [Suspect]
     Active Substance: AMLODIPINE BESYLATE
     Indication: PRODUCT USED FOR UNKNOWN INDICATION
     Dosage: 5.0 MILLIGRAM, 1 EVERY 1 DAYS
     Route: 048
  2. IRBESARTAN. [Suspect]
     Active Substance: IRBESARTAN
     Indication: HYPERTENSION
     Dosage: 300.0 MILLIGRAM, 1 EVERY 1 DAYS
     Route: 048
  3. JANUVIA [Suspect]
     Active Substance: SITAGLIPTIN PHOSPHATE
     Indication: PRODUCT USED FOR UNKNOWN INDICATION
     Dosage: 100.0 MILLIGRAM, 1 EVERY 1 DAYS
     Route: 048
  4. ASPIRIN. [Suspect]
     Active Substance: ASPIRIN
     Indication: PRODUCT USED FOR UNKNOWN INDICATION
     Dosage: 80.0 MILLIGRAM, 1 EVERY 1 DAYS; DOSAGE FORM NOT SPECIFIED
     Route: 048
  5. RASILEZ [Suspect]
     Active Substance: ALISKIREN
     Indication: HYPERTENSION
     Dosage: 150.0 MILLIGRAM, 1 EVERY 1 DAYS
     Route: 048
  6. GLYCON (METFORMIN HYDROCHLORIDE) [Suspect]
     Active Substance: METFORMIN HYDROCHLORIDE
     Indication: HYPERTENSION
     Dosage: 850.0 MILLIGRAM, 3 EVERY 1 DAYS
     Route: 048
  7. ESOMEPRAZOLE. [Suspect]
     Active Substance: ESOMEPRAZOLE MAGNESIUM
     Indication: PRODUCT USED FOR UNKNOWN INDICATION
     Dosage: 40.0 MILLIGRAM, 1 EVERY 1 DAY; DOSAGE FORM NOT SPECIFIED
     Route: 048
  8. IRBESARTAN SANDOZ [Suspect]
     Active Substance: IRBESARTAN
     Indication: HYPERTENSION
     Dosage: 300.0 MILLIGRAM, 1 EVERY 1 DAYS
     Route: 048
  9. LIPITOR [Suspect]
     Active Substance: ATORVASTATIN CALCIUM
     Indication: PRODUCT USED FOR UNKNOWN INDICATION
     Dosage: 20.0 MILLIGRAM, 1 EVERY 1 DAYS
     Route: 048

REACTIONS (10)
  - Cerebrovascular accident [Unknown]
  - Muscle spasticity [Unknown]
  - Anxiety [Unknown]
  - Aphasia [Unknown]
  - Muscular weakness [Unknown]
  - Personality disorder [Unknown]
  - Confusional state [Unknown]
  - Affect lability [Unknown]
  - Dysphagia [Unknown]
  - Hemiplegia [Unknown]
